FAERS Safety Report 4389385-2 (Version None)
Quarter: 2004Q2

REPORT INFORMATION
  Report Type: 
  Country: None (occurrence: None)
  Receive Date: 20040630
  Receipt Date: 20040618
  Transmission Date: 20050107
  Serious: Yes (Death, Hospitalization)
  Sender: FDA-Public Use
  Company Number: 200410418BNE

PATIENT
  Age: 34 Year
  Sex: Male

DRUGS (2)
  1. TRASYLOL [Suspect]
     Indication: POST PROCEDURAL HAEMORRHAGE
     Dosage: INTRAVENOUS
     Route: 042
     Dates: start: 20040601
  2. TRASYLOL [Suspect]
     Indication: PULMONARY VALVE REPLACEMENT
     Dosage: INTRAVENOUS
     Route: 042
     Dates: start: 20040601

REACTIONS (2)
  - BRAIN DAMAGE [None]
  - CEREBRAL VENOUS THROMBOSIS [None]
